FAERS Safety Report 7989680 (Version 2)
Quarter: 2013Q4

REPORT INFORMATION
  Report Type: Spontaneous
  Country: US (occurrence: None)
  Receive Date: 20110526
  Receipt Date: 20131010
  Transmission Date: 20140711
  Serious: Yes (Hospitalization)
  Sender: FDA-Public Use
  Company Number: CIP11000559

PATIENT
  Age: 64 Year
  Sex: Female
  Weight: 55 kg

DRUGS (7)
  1. ACTONEL [Suspect]
     Indication: OSTEOPOROSIS
     Dosage: 35 MG, ORAL,ONCE A WEEK.
     Route: 048
     Dates: start: 20021101
  2. FOSAMAX [Suspect]
     Indication: OSTEOPOROSIS
     Dosage: 70 MG, ORAL, ONCE A WEEK.
     Route: 048
     Dates: start: 20050211
  3. NAPROXEN (NAPROXEN) [Concomitant]
  4. IBUPROFEN (IBUPROFEN) [Concomitant]
  5. LIPITOR [Concomitant]
  6. SKELAXIN /00611501/ (METAXALONE) [Concomitant]
  7. ALENDRONATE [Suspect]
     Indication: OSTEOPOROSIS
     Dosage: 70 MG/WK.

REACTIONS (6)
  - Atypical femur fracture [None]
  - Fracture displacement [None]
  - Fall [None]
  - Arthralgia [None]
  - Impaired healing [None]
  - Urinary tract infection [None]
